FAERS Safety Report 6782909-7 (Version None)
Quarter: 2010Q2

REPORT INFORMATION
  Report Type: 
  Country: None (occurrence: None)
  Receive Date: 20100622
  Receipt Date: 20100615
  Transmission Date: 20101027
  Serious: Yes (Other)
  Sender: FDA-Public Use
  Company Number: US-BIOGENIDEC-2010BI018956

PATIENT
  Age: 63 Year
  Sex: Male

DRUGS (3)
  1. AVONEX [Suspect]
     Indication: MULTIPLE SCLEROSIS
     Route: 030
     Dates: start: 19990222, end: 20030801
  2. AVONEX [Suspect]
     Route: 030
     Dates: start: 20030801, end: 20080303
  3. MEDICATIONS NOS [Concomitant]

REACTIONS (3)
  - DIZZINESS [None]
  - PROSTATE CANCER [None]
  - THYROID CANCER [None]
